FAERS Safety Report 9413138 (Version 1)
Quarter: 2013Q3

REPORT INFORMATION
  Report Type: Spontaneous
  Country: US (occurrence: US)
  Receive Date: 20130722
  Receipt Date: 20130722
  Transmission Date: 20140515
  Serious: Yes (Other)
  Sender: FDA-Public Use
  Company Number: ALCN2013US000643

PATIENT
  Age: 36 Year
  Sex: Male

DRUGS (2)
  1. PATANOL [Suspect]
     Indication: KERATITIS
  2. TACROLIMUS [Suspect]
     Indication: KERATITIS
     Route: 047

REACTIONS (3)
  - Ulcerative keratitis [Recovered/Resolved with Sequelae]
  - Punctate keratitis [Recovered/Resolved with Sequelae]
  - Drug ineffective [Recovered/Resolved with Sequelae]
